FAERS Safety Report 5837032-2 (Version None)
Quarter: 2008Q3

REPORT INFORMATION
  Report Type: 
  Country: None (occurrence: None)
  Receive Date: 20080807
  Receipt Date: 20080407
  Transmission Date: 20090109
  Serious: No
  Sender: FDA-Public Use
  Company Number: US-BRISTOL-MYERS SQUIBB COMPANY-14026009

PATIENT
  Age: 71 Year
  Sex: Female

DRUGS (8)
  1. GLYBURIDE AND METFORMIN HCL [Suspect]
     Indication: DIABETES MELLITUS
     Dosage: 1 DOSAGE FORM:1 TAB TWICE DAILY 2.5MG AND 500MG
     Route: 048
  2. NAPROXEN [Suspect]
  3. LEVOTHYROXINE SODIUM [Suspect]
  4. OMEPRAZOLE [Suspect]
  5. GLUCOSAMINE [Suspect]
  6. FISH OIL [Suspect]
  7. BIOTIN [Suspect]
  8. MULTI-VITAMIN [Suspect]

REACTIONS (1)
  - COOMBS DIRECT TEST POSITIVE [None]
